FAERS Safety Report 23269232 (Version 1)
Quarter: 2023Q4

REPORT INFORMATION
  Report Type: Report from Study
  Country: US (occurrence: US)
  Receive Date: 20231207
  Receipt Date: 20231207
  Transmission Date: 20240109
  Serious: Yes (Other)
  Sender: FDA-Public Use
  Company Number: US-ABBVIE-5526837

PATIENT
  Sex: Female

DRUGS (1)
  1. RINVOQ [Suspect]
     Active Substance: UPADACITINIB
     Indication: Crohn^s disease
     Route: 048
     Dates: start: 20230715

REACTIONS (6)
  - Ostomy bag placement [Not Recovered/Not Resolved]
  - Ileostomy [Unknown]
  - Abnormal faeces [Unknown]
  - Product dispensing error [Not Recovered/Not Resolved]
  - Product residue present [Unknown]
  - Malabsorption [Unknown]

NARRATIVE: CASE EVENT DATE: 20230101
